FAERS Safety Report 18043169 (Version 1)
Quarter: 2020Q3

REPORT INFORMATION
  Report Type: Spontaneous
  Country: US (occurrence: US)
  Receive Date: 20200717
  Receipt Date: 20200717
  Transmission Date: 20201103
  Serious: Yes (Hospitalization)
  Sender: FDA-Public Use
  Company Number: None

PATIENT
  Sex: Male

DRUGS (10)
  1. VITAMIN E [Concomitant]
     Active Substance: .ALPHA.-TOCOPHEROL
     Dates: start: 20190807
  2. AZATHIOPRINE. [Concomitant]
     Active Substance: AZATHIOPRINE
     Dates: start: 20190807
  3. LEXAPRO [Concomitant]
     Active Substance: ESCITALOPRAM OXALATE
     Dates: start: 20190807
  4. VESICARE [Concomitant]
     Active Substance: SOLIFENACIN SUCCINATE
     Dates: start: 20190807
  5. PREDNISONE. [Concomitant]
     Active Substance: PREDNISONE
     Dates: start: 20190807
  6. TAMSULOSIN [Concomitant]
     Active Substance: TAMSULOSIN
     Dates: start: 20190807
  7. GABAPENTIN. [Concomitant]
     Active Substance: GABAPENTIN
     Dates: start: 20190807
  8. DALFAMPRIDINE. [Suspect]
     Active Substance: DALFAMPRIDINE
     Indication: MULTIPLE SCLEROSIS
     Route: 048
     Dates: start: 20181024
  9. VITAMIN B12 [Concomitant]
     Active Substance: CYANOCOBALAMIN
     Dates: start: 20190807
  10. VITAMIN D [Concomitant]
     Active Substance: VITAMIN D NOS
     Dates: start: 20190807

REACTIONS (4)
  - Fall [None]
  - Femur fracture [None]
  - Fatigue [None]
  - Muscular weakness [None]
